FAERS Safety Report 19584784 (Version 1)
Quarter: 2021Q3

REPORT INFORMATION
  Report Type: Report from Study
  Country: CZ (occurrence: CZ)
  Receive Date: 20210720
  Receipt Date: 20210720
  Transmission Date: 20211014
  Serious: Yes (Other)
  Sender: FDA-Public Use
  Company Number: CZ-MYLANLABS-2021M1042886

PATIENT
  Age: 48 Year
  Sex: Female

DRUGS (3)
  1. PYRIDOXIN [Concomitant]
     Active Substance: PYRIDOXINE
     Dosage: UNK
     Route: 065
  2. CITALOPRAM [Concomitant]
     Active Substance: CITALOPRAM HYDROBROMIDE
     Dosage: UNK
     Route: 065
  3. HULIO [Suspect]
     Active Substance: ADALIMUMAB-FKJP
     Indication: PSORIATIC ARTHROPATHY
     Dosage: 40 MILLIGRAM, BID (TWICE A MONTH)
     Route: 058
     Dates: start: 20190709, end: 20210616

REACTIONS (1)
  - Drug ineffective [Unknown]

NARRATIVE: CASE EVENT DATE: 20210616
